FAERS Safety Report 15724070 (Version 1)
Quarter: 2018Q4

REPORT INFORMATION
  Report Type: Spontaneous
  Country: DE (occurrence: DE)
  Receive Date: 20181214
  Receipt Date: 20181214
  Transmission Date: 20190205
  Serious: Yes (Other)
  Sender: FDA-Public Use
  Company Number: DE-BAYER-2018-231281

PATIENT
  Sex: Male
  Weight: 1.94 kg

DRUGS (1)
  1. MIRENA [Suspect]
     Active Substance: LEVONORGESTREL
     Indication: HYPOMENORRHOEA
     Dosage: UNK
     Dates: start: 201611

REACTIONS (2)
  - Foetal growth restriction [None]
  - Exposure during pregnancy [None]
